FAERS Safety Report 6753197-2 (Version None)
Quarter: 2010Q2

REPORT INFORMATION
  Report Type: 
  Country: None (occurrence: None)
  Receive Date: 20100603
  Receipt Date: 20100527
  Transmission Date: 20101027
  Serious: Yes (Hospitalization, Other)
  Sender: FDA-Public Use
  Company Number: US-PFIZER INC-2010043802

PATIENT
  Sex: Female
  Weight: 64.853 kg

DRUGS (3)
  1. BEXTRA [Suspect]
     Indication: RADICULAR PAIN
     Dosage: 1X/DAY
     Route: 048
     Dates: start: 20040129, end: 20060101
  2. BEXTRA [Suspect]
     Indication: NECK PAIN
  3. TYLENOL [Concomitant]
     Dosage: UNK

REACTIONS (4)
  - ARTERIOVENOUS MALFORMATION [None]
  - LOWER LIMB FRACTURE [None]
  - PULMONARY ARTERY ANEURYSM [None]
  - PULMONARY EMBOLISM [None]
